FAERS Safety Report 5928463-0 (Version None)
Quarter: 2008Q4

REPORT INFORMATION
  Report Type: 
  Country: None (occurrence: None)
  Receive Date: 20081023
  Receipt Date: 20081020
  Transmission Date: 20090506
  Serious: Yes (Other)
  Sender: FDA-Public Use
  Company Number: US-JNJCH-2008052541

PATIENT
  Age: 24 Year
  Sex: Female

DRUGS (1)
  1. NASALCROM [Suspect]
     Indication: HYPERSENSITIVITY
     Dosage: TEXT:UNSPECIFIED
     Route: 045

REACTIONS (1)
  - ASTHMA [None]
